FAERS Safety Report 4450556-8 (Version None)
Quarter: 2004Q3

REPORT INFORMATION
  Report Type: 
  Country: None (occurrence: None)
  Receive Date: 20040913
  Receipt Date: 20040628
  Transmission Date: 20050211
  Serious: No
  Sender: FDA-Public Use
  Company Number: 2004-BP-05192BP(0)

PATIENT
  Age: 65 Year
  Sex: Female
  Weight: 47.6 kg

DRUGS (8)
  1. SPIRIVA [Suspect]
     Indication: CHRONIC OBSTRUCTIVE AIRWAYS DISEASE
     Dosage: 18 MCG, IH
     Route: 055
     Dates: start: 20040623
  2. THEO-DUR [Suspect]
     Dosage: 200 MG, PO
     Route: 048
  3. COREG [Concomitant]
  4. MICRO-K [Concomitant]
  5. LASIX [Concomitant]
  6. PRINIVIL [Concomitant]
  7. DIGOXIN [Concomitant]
  8. LEXAPRO [Concomitant]

REACTIONS (1)
  - NAUSEA [None]
